FAERS Safety Report 12542292 (Version 2)
Quarter: 2016Q3

REPORT INFORMATION
  Report Type: Spontaneous
  Country: GB (occurrence: GB)
  Receive Date: 20160708
  Receipt Date: 20160831
  Transmission Date: 20161109
  Serious: Yes (Other)
  Sender: FDA-Public Use
  Company Number: GB-BRISTOL-MYERS SQUIBB COMPANY-BMS-2016-054709

PATIENT

DRUGS (1)
  1. AZACTAM [Suspect]
     Active Substance: AZTREONAM
     Indication: ABSCESS LIMB
     Dosage: 2 G, TID
     Route: 065

REACTIONS (2)
  - Endocarditis [Unknown]
  - Osteomyelitis [Unknown]
